FAERS Safety Report 19229112 (Version 1)
Quarter: 2021Q2

REPORT INFORMATION
  Report Type: Spontaneous
  Country: US (occurrence: US)
  Receive Date: 20210507
  Receipt Date: 20210507
  Transmission Date: 20210717
  Serious: Yes (Other)
  Sender: FDA-Public Use
  Company Number: US-ORPHANEU-2019000021

PATIENT

DRUGS (1)
  1. CYSTADANE [Suspect]
     Active Substance: BETAINE
     Indication: HOMOCYSTINURIA
     Dosage: 5 SCOOPS 3 TIMES A DAY
     Route: 048

REACTIONS (4)
  - Haematemesis [Unknown]
  - Hyperactive pharyngeal reflex [Unknown]
  - Product use issue [Recovered/Resolved]
  - Haematochezia [Unknown]
